FAERS Safety Report 14689239 (Version 1)
Quarter: 2018Q1

REPORT INFORMATION
  Report Type: Spontaneous
  Country: US (occurrence: US)
  Receive Date: 20180327
  Receipt Date: 20180327
  Transmission Date: 20180509
  Serious: Yes (Disabling)
  Sender: FDA-Public Use
  Company Number: None

PATIENT
  Age: 61 Year
  Sex: Female
  Weight: 87.75 kg

DRUGS (16)
  1. SYMBICORT [Concomitant]
     Active Substance: BUDESONIDE\FORMOTEROL FUMARATE DIHYDRATE
  2. PROVIGIL [Concomitant]
     Active Substance: MODAFINIL
  3. HYOSCOMINNE [Concomitant]
  4. MOTRIN [Concomitant]
     Active Substance: IBUPROFEN
  5. ATIVAN [Concomitant]
     Active Substance: LORAZEPAM
  6. SINGULARITY [Concomitant]
  7. SKELAXIN [Concomitant]
     Active Substance: METAXALONE
  8. VITAMIN D [Concomitant]
     Active Substance: CHOLECALCIFEROL
  9. MELATONIN [Concomitant]
     Active Substance: MELATONIN
  10. LEVAQUIN [Suspect]
     Active Substance: LEVOFLOXACIN
     Indication: SINUSITIS
     Route: 048
  11. SUDAFED [Concomitant]
     Active Substance: PSEUDOEPHEDRINE HYDROCHLORIDE
  12. ALBUTERAL [Concomitant]
     Active Substance: ALBUTEROL
  13. AMBIEN [Concomitant]
     Active Substance: ZOLPIDEM TARTRATE
  14. TYLENOL [Concomitant]
     Active Substance: ACETAMINOPHEN
  15. TRAZODONE [Concomitant]
     Active Substance: TRAZODONE HYDROCHLORIDE
  16. TRAMADOL. [Concomitant]
     Active Substance: TRAMADOL

REACTIONS (5)
  - Asthenia [None]
  - Mobility decreased [None]
  - Arthralgia [None]
  - Myalgia [None]
  - Spinal disorder [None]
